FAERS Safety Report 5449137-9 (Version None)
Quarter: 2007Q3

REPORT INFORMATION
  Report Type: 
  Country: None (occurrence: None)
  Receive Date: 20070911
  Receipt Date: 20070906
  Transmission Date: 20080115
  Serious: Yes (Death)
  Sender: FDA-Public Use
  Company Number: US-ROXANE LABORATORIES, INC-2007-DE-00557GD

PATIENT
  Age: 3 Month
  Sex: Male

DRUGS (6)
  1. DEXTROMETHORPHAN HYDROBROMIDE [Suspect]
  2. PARACETAMOL [Suspect]
  3. PSEUDOEPHEDRINE HCL [Suspect]
  4. DOXYLAMINE [Suspect]
  5. NYSTATIN [Concomitant]
     Indication: CANDIDIASIS
  6. NYSTATIN [Concomitant]
     Indication: DERMATITIS DIAPER

REACTIONS (2)
  - ANOXIC ENCEPHALOPATHY [None]
  - DRUG TOXICITY [None]
